FAERS Safety Report 9310878 (Version 1)
Quarter: 2013Q2

REPORT INFORMATION
  Report Type: Spontaneous
  Country: US (occurrence: None)
  Receive Date: 20130523
  Receipt Date: 20130523
  Transmission Date: 20140414
  Serious: Yes (Hospitalization)
  Sender: FDA-Public Use
  Company Number: None

PATIENT
  Age: 66 Year
  Sex: Male
  Weight: 86.8 kg

DRUGS (2)
  1. LISINOPRIL [Suspect]
     Route: 048
     Dates: start: 20010320, end: 20130519
  2. METOPROLOL [Suspect]
     Route: 048
     Dates: start: 20120223, end: 20130519

REACTIONS (1)
  - Syncope [None]
